FAERS Safety Report 23797261 (Version 1)
Quarter: 2024Q2

REPORT INFORMATION
  Report Type: Spontaneous
  Country: US (occurrence: US)
  Receive Date: 20240430
  Receipt Date: 20240430
  Transmission Date: 20240715
  Serious: No
  Sender: FDA-Public Use
  Company Number: US-HALEON-2169766

PATIENT

DRUGS (1)
  1. GAS-X [Suspect]
     Active Substance: DIMETHICONE
     Indication: Product used for unknown indication

REACTIONS (1)
  - Rash [Unknown]
